FAERS Safety Report 13480184 (Version 2)
Quarter: 2017Q2

REPORT INFORMATION
  Report Type: Spontaneous
  Country: FR (occurrence: FR)
  Receive Date: 20170425
  Receipt Date: 20170629
  Transmission Date: 20170830
  Serious: Yes (Other)
  Sender: FDA-Public Use
  Company Number: FR-BAUSCH-BL-2017-010771

PATIENT
  Age: 64 Year
  Sex: Male

DRUGS (3)
  1. MOVIPREP [Suspect]
     Active Substance: ASCORBIC ACID\POLYETHYLENE GLYCOL 3350\POTASSIUM CHLORIDE\SODIUM ASCORBATE\SODIUM CHLORIDE\SODIUM SULFATE
     Indication: BOWEL PREPARATION
     Dosage: SINGLE
     Route: 048
     Dates: start: 20120916, end: 20120916
  2. MICROPAQUE SCANNER [Suspect]
     Active Substance: BARIUM SULFATE
     Indication: BOWEL PREPARATION
     Dosage: 1//2 AT MIDDAY AND 1/2 IN THE EVENING
     Route: 065
     Dates: start: 20120916, end: 20120916
  3. GASTROGRAFINE [Suspect]
     Active Substance: DIATRIZOATE MEGLUMINE\DIATRIZOATE SODIUM
     Indication: BOWEL PREPARATION
     Dosage: IN THE EVENING
     Dates: start: 20120916, end: 20120916

REACTIONS (6)
  - Diarrhoea [Recovered/Resolved]
  - Nausea [Recovered/Resolved]
  - Ascites [Recovered/Resolved]
  - Weight decreased [Recovered/Resolved]
  - Decreased appetite [Recovered/Resolved]
  - Vomiting [Recovered/Resolved]

NARRATIVE: CASE EVENT DATE: 201209
